FAERS Safety Report 9827008 (Version 1)
Quarter: 2014Q1

REPORT INFORMATION
  Report Type: Spontaneous
  Country: US (occurrence: US)
  Receive Date: 20140117
  Receipt Date: 20140117
  Transmission Date: 20141002
  Serious: No
  Sender: FDA-Public Use
  Company Number: US-GLAXOSMITHKLINE-A1025555A

PATIENT
  Age: 66 Year
  Sex: Female

DRUGS (9)
  1. PROMACTA [Suspect]
     Indication: IMMUNE THROMBOCYTOPENIC PURPURA
     Dosage: 25MG PER DAY
     Route: 048
  2. NEXIUM [Concomitant]
  3. CELEXA [Concomitant]
  4. MULTIVITAMIN [Concomitant]
  5. VITAMIN D [Concomitant]
  6. AMBIEN [Concomitant]
  7. ATENOLOL [Concomitant]
  8. EXFORGE HCT [Concomitant]
  9. DEXAMETHASONE [Concomitant]

REACTIONS (2)
  - Venous thrombosis [Unknown]
  - Therapy change [Unknown]
